FAERS Safety Report 25566373 (Version 1)
Quarter: 2025Q3

REPORT INFORMATION
  Report Type: Spontaneous
  Country: US (occurrence: None)
  Receive Date: 20250715
  Receipt Date: 20250715
  Transmission Date: 20251021
  Serious: Yes (Life-Threatening, Hospitalization)
  Sender: FDA-CTU
  Company Number: None

PATIENT
  Age: 36 Year
  Sex: Female
  Weight: 46.8 kg

DRUGS (1)
  1. .DELTA.9-TETRAHYDROCANNABINOL\CANNABIDIOL\HERBALS [Suspect]
     Active Substance: .DELTA.9-TETRAHYDROCANNABINOL\CANNABIDIOL\HERBALS
     Route: 048
     Dates: start: 20250714, end: 20250714

REACTIONS (6)
  - Substance use [None]
  - Accidental overdose [None]
  - Dizziness [None]
  - Somnolence [None]
  - Hallucination, auditory [None]
  - Feeling abnormal [None]

NARRATIVE: CASE EVENT DATE: 20250714
